FAERS Safety Report 5977850-3 (Version None)
Quarter: 2008Q4

REPORT INFORMATION
  Report Type: 
  Country: None (occurrence: None)
  Receive Date: 20081203
  Receipt Date: 20081125
  Transmission Date: 20090506
  Serious: Yes (Hospitalization)
  Sender: FDA-Public Use
  Company Number: US-SANOFI-SYNTHELABO-A03200804773

PATIENT
  Sex: Female
  Weight: 70.29 kg

DRUGS (4)
  1. GAMMA [Concomitant]
     Route: 042
     Dates: end: 20080401
  2. TOPROL-XL [Concomitant]
     Indication: DRUG USE FOR UNKNOWN INDICATION
     Route: 065
  3. CRESTOR [Concomitant]
     Indication: DRUG USE FOR UNKNOWN INDICATION
     Route: 065
  4. PLAVIX [Suspect]
     Indication: TRANSIENT ISCHAEMIC ATTACK
     Route: 048
     Dates: start: 20070101

REACTIONS (5)
  - ABDOMINAL PAIN [None]
  - BLINDNESS TRANSIENT [None]
  - CONTUSION [None]
  - DIARRHOEA [None]
  - GASTROINTESTINAL PAIN [None]
